FAERS Safety Report 8115641-8 (Version None)
Quarter: 2012Q1

REPORT INFORMATION
  Report Type: 
  Country: None (occurrence: None)
  Receive Date: 20120206
  Receipt Date: 20120131
  Transmission Date: 20120608
  Serious: Yes (Other)
  Sender: FDA-Public Use
  Company Number: US-BAYER-2012-010249

PATIENT

DRUGS (2)
  1. AMOXICILLIN [Suspect]
     Indication: TOOTH INFECTION
     Route: 048
  2. ALEVE (CAPLET) [Suspect]
     Indication: TOOTHACHE

REACTIONS (5)
  - TONGUE PRURITUS [None]
  - HYPERSENSITIVITY [None]
  - SWOLLEN TONGUE [None]
  - PHARYNGEAL OEDEMA [None]
  - THROAT IRRITATION [None]
